FAERS Safety Report 5773900-8 (Version None)
Quarter: 2008Q2

REPORT INFORMATION
  Report Type: 
  Country: None (occurrence: None)
  Receive Date: 20080616
  Receipt Date: 20080610
  Transmission Date: 20081010
  Serious: Yes (Other)
  Sender: FDA-Public Use
  Company Number: B0500201A

PATIENT
  Age: 13 Year

DRUGS (4)
  1. RELENZA [Suspect]
     Indication: INFLUENZA
     Route: 055
     Dates: start: 20071213
  2. CALONAL [Concomitant]
  3. ASVERIN [Concomitant]
     Route: 048
  4. BISOLVON [Concomitant]

REACTIONS (1)
  - COLOUR BLINDNESS [None]
